FAERS Safety Report 7691788 (Version 2)
Quarter: 2012Q4

REPORT INFORMATION
  Report Type: Spontaneous
  Country: US (occurrence: None)
  Receive Date: 20101109
  Receipt Date: 20121114
  Transmission Date: 20130628
  Serious: Yes (Death, Life-Threatening, Hospitalization, Other)
  Sender: FDA-Public Use
  Company Number: 2010MA004110

PATIENT
  Sex: Female
  Weight: 50.53 kg

DRUGS (7)
  1. METOCLOPRAMIDE [Suspect]
     Indication: GASTROPARESIS
     Dosage: PO
     Route: 048
     Dates: start: 20080925, end: 201002
  2. MECLIZINE [Concomitant]
  3. GABAPENTIN [Concomitant]
  4. CLONAZEPAM [Concomitant]
  5. SINEMET [Concomitant]
  6. COREG [Concomitant]
  7. COMBIVENT [Concomitant]

REACTIONS (5)
  - Tardive dyskinesia [None]
  - Emotional disorder [None]
  - Economic problem [None]
  - Tremor [None]
  - Amnesia [None]
